FAERS Safety Report 9952300 (Version 1)
Quarter: 2014Q1

REPORT INFORMATION
  Report Type: Report from Study
  Country: US (occurrence: US)
  Receive Date: 20140304
  Receipt Date: 20140304
  Transmission Date: 20141002
  Serious: No
  Sender: FDA-Public Use
  Company Number: US-ABBVIE-13P-163-1073549-00

PATIENT
  Age: 24 Year
  Sex: Female

DRUGS (3)
  1. HUMIRA [Suspect]
     Indication: CROHN^S DISEASE
     Dates: start: 20121120
  2. LOESTRIN [Concomitant]
     Indication: CONTRACEPTION
     Dosage: 1 DAILY
  3. 6MP [Concomitant]
     Indication: CROHN^S DISEASE
     Dosage: 50MG DAILY

REACTIONS (1)
  - Injection site reaction [Recovered/Resolved]
